FAERS Safety Report 20966586 (Version 1)
Quarter: 2022Q2

REPORT INFORMATION
  Report Type: Spontaneous
  Country: PT (occurrence: PT)
  Receive Date: 20220616
  Receipt Date: 20220616
  Transmission Date: 20220721
  Serious: Yes (Hospitalization)
  Sender: FDA-Public Use
  Company Number: PT-MYLANLABS-2022M1045278

PATIENT
  Age: 54 Year
  Sex: Female

DRUGS (6)
  1. SUNITINIB [Suspect]
     Active Substance: SUNITINIB
     Indication: Pancreatic neuroendocrine tumour metastatic
     Dosage: 37.5 MILLIGRAM, QD, ON SCHEDULE 2/2??.
  2. SUNITINIB [Suspect]
     Active Substance: SUNITINIB
     Dosage: UNK, COMBINED WITH SUNITINIB
  3. OCTREOTIDE [Suspect]
     Active Substance: OCTREOTIDE
     Indication: Pancreatic neuroendocrine tumour metastatic
     Dosage: 100 MICROGRAM, Q8H
  4. OCTREOTIDE [Suspect]
     Active Substance: OCTREOTIDE
     Indication: Pancreatic neuroendocrine tumour metastatic
     Dosage: 30 MILLIGRAM, EVERY 28 DAYS
  5. LANREOTIDE [Suspect]
     Active Substance: LANREOTIDE
     Indication: Pancreatic neuroendocrine tumour metastatic
     Dosage: 120 MILLIGRAM, EVERY 28 DAYS, WAS FIRST INTENSIFIED AND THEN AGAIN COMBINED WITH SUNITINIB
  6. LOPERAMIDE [Concomitant]
     Active Substance: LOPERAMIDE
     Indication: Diarrhoea
     Dosage: UNK

REACTIONS (1)
  - Drug ineffective [Unknown]
